FAERS Safety Report 10156535 (Version 2)
Quarter: 2014Q2

REPORT INFORMATION
  Report Type: Spontaneous
  Country: CA (occurrence: None)
  Receive Date: 20140505
  Receipt Date: 20140611
  Transmission Date: 20141212
  Serious: Yes (Hospitalization, Other)
  Sender: FDA-Public Use
  Company Number: CA-015506

PATIENT
  Age: 89 Year
  Sex: Male

DRUGS (11)
  1. FIRMAGON [Suspect]
     Indication: PROSTATE CANCER
     Dosage: 240MG 1X
     Route: 058
     Dates: start: 20140318, end: 20140318
  2. METFORMIN [Concomitant]
  3. ZYTIGA [Concomitant]
  4. CALCIUM CARBONATE [Concomitant]
  5. PREDNISONE [Concomitant]
  6. OXYCONTIN [Concomitant]
  7. LIPITOR [Concomitant]
  8. VITAMIN D SUPPORT [Concomitant]
  9. RAMIPRIL [Concomitant]
  10. CYMBALTA [Concomitant]
  11. ASA [Concomitant]

REACTIONS (8)
  - Dyspnoea exertional [None]
  - Coronary artery bypass [None]
  - Mass [None]
  - Arthropathy [None]
  - Fall [None]
  - Haemoglobin decreased [None]
  - Asthenia [None]
  - Blood glucose increased [None]
